FAERS Safety Report 23133383 (Version 1)
Quarter: 2023Q4

REPORT INFORMATION
  Report Type: Spontaneous
  Country: US (occurrence: US)
  Receive Date: 20231101
  Receipt Date: 20231101
  Transmission Date: 20240109
  Serious: No
  Sender: FDA-Public Use
  Company Number: US-Blueprint Medicines Corporation-1645

PATIENT
  Sex: Female

DRUGS (1)
  1. AYVAKIT [Suspect]
     Active Substance: AVAPRITINIB
     Indication: Systemic mastocytosis
     Route: 065
     Dates: start: 20231007

REACTIONS (5)
  - Fatigue [Unknown]
  - Dyspnoea [Unknown]
  - Disturbance in attention [Unknown]
  - Haematocrit decreased [Unknown]
  - Haemoglobin decreased [Unknown]
